FAERS Safety Report 14326031 (Version 5)
Quarter: 2018Q2

REPORT INFORMATION
  Report Type: Report from Study
  Country: US (occurrence: US)
  Receive Date: 20171226
  Receipt Date: 20180511
  Transmission Date: 20180711
  Serious: Yes (Hospitalization)
  Sender: FDA-Public Use
  Company Number: US-ACTELION-A-US2017-164745

PATIENT
  Age: 62 Year
  Sex: Female
  Weight: 65.76 kg

DRUGS (5)
  1. SILDENAFIL. [Concomitant]
     Active Substance: SILDENAFIL
  2. REMODULIN [Concomitant]
     Active Substance: TREPROSTINIL
     Dosage: UNK
     Route: 042
  3. OPSUMIT [Suspect]
     Active Substance: MACITENTAN
     Indication: PULMONARY ARTERIAL HYPERTENSION
     Dosage: 10 MG, QD
     Route: 048
  4. EPOPROSTENOL TEVA [Concomitant]
  5. REMODULIN [Concomitant]
     Active Substance: TREPROSTINIL
     Route: 058

REACTIONS (14)
  - Catheter site rash [Unknown]
  - Infusion site cellulitis [Unknown]
  - Diarrhoea [Unknown]
  - Headache [Unknown]
  - Infusion site infection [Unknown]
  - Pyrexia [Unknown]
  - Catheter site pain [Unknown]
  - Catheter site erythema [Unknown]
  - Skin weeping [Unknown]
  - Catheter site related reaction [Unknown]
  - Catheter placement [Unknown]
  - Catheter site erosion [Unknown]
  - Catheter site discharge [Unknown]
  - Catheter site pruritus [Unknown]
